FAERS Safety Report 8015300-6 (Version None)
Quarter: 2011Q4

REPORT INFORMATION
  Report Type: 
  Country: None (occurrence: None)
  Receive Date: 20111223
  Receipt Date: 20111214
  Transmission Date: 20120403
  Serious: Yes (Hospitalization)
  Sender: FDA-Public Use
  Company Number: 2011MA017725

PATIENT
  Age: 40 Year
  Sex: Female

DRUGS (7)
  1. ALBUTEROL SULFATE AUTOHALER [Concomitant]
  2. TIMOLOL AND BIMATOPROST [Concomitant]
  3. CO-DYDRAMOL [Concomitant]
  4. DOXYCYCLINE HYCLATE [Suspect]
     Dosage: 200 MG;PO
     Route: 048
     Dates: start: 20111103, end: 20111103
  5. FOLIC ACID [Concomitant]
  6. AMOXICILLIN [Concomitant]
  7. BRINZOLAMIDE [Concomitant]

REACTIONS (2)
  - TOXICITY TO VARIOUS AGENTS [None]
  - DRUG INTERACTION [None]
